FAERS Safety Report 16058273 (Version 1)
Quarter: 2019Q1

REPORT INFORMATION
  Report Type: Spontaneous
  Country: DE (occurrence: DE)
  Receive Date: 20190311
  Receipt Date: 20190311
  Transmission Date: 20190418
  Serious: Yes (Death)
  Sender: FDA-Public Use
  Company Number: DE-PFIZER INC-2019102486

PATIENT
  Age: 69 Year
  Sex: Female

DRUGS (4)
  1. DOXAZOSIN [Concomitant]
     Active Substance: DOXAZOSIN\DOXAZOSIN MESYLATE
     Dosage: UNK
  2. TIGECYCLINE. [Suspect]
     Active Substance: TIGECYCLINE
     Indication: WOUND INFECTION BACTERIAL
     Dosage: 100 MG, DAILY
     Dates: start: 20190210, end: 20190226
  3. METAMIZOLE [Concomitant]
     Active Substance: METAMIZOLE
     Dosage: UNK
  4. ESCITALOPRAM [Concomitant]
     Active Substance: ESCITALOPRAM OXALATE
     Dosage: UNK

REACTIONS (2)
  - Pancreatitis necrotising [Fatal]
  - Thrombocytopenia [Fatal]
